FAERS Safety Report 7928709-3 (Version None)
Quarter: 2011Q4

REPORT INFORMATION
  Report Type: 
  Country: None (occurrence: None)
  Receive Date: 20111118
  Receipt Date: 20111116
  Transmission Date: 20120403
  Serious: Yes (Other)
  Sender: FDA-Public Use
  Company Number: US-BAYER-2011-111292

PATIENT
  Age: 53 Year
  Sex: Female

DRUGS (2)
  1. VITAMINS NOS [Concomitant]
  2. ASPIRIN [Suspect]
     Indication: BACK PAIN
     Dosage: UNK UNK, PRN
     Route: 048
     Dates: end: 20090101

REACTIONS (2)
  - GASTRIC DISORDER [None]
  - ULCER [None]
